FAERS Safety Report 19630663 (Version 4)
Quarter: 2021Q4

REPORT INFORMATION
  Report Type: Report from Study
  Country: US (occurrence: US)
  Receive Date: 20210729
  Receipt Date: 20211123
  Transmission Date: 20220304
  Serious: Yes (Disabling, Other)
  Sender: FDA-Public Use
  Company Number: US-APELLIS-00462

PATIENT
  Age: 91 Year
  Sex: Male
  Weight: 87.09 kg

DRUGS (3)
  1. PEGCETACOPLAN [Suspect]
     Active Substance: PEGCETACOPLAN
     Indication: Dry age-related macular degeneration
     Route: 050
     Dates: start: 20190611, end: 20200702
  2. 1854371 (GLOBALC3Mar21): Losartan potassium [Concomitant]
     Indication: Hypertension
     Route: 048
     Dates: start: 2014
  3. 1326486 (GLOBALC3Mar21): Hydrochlorothiazide [Concomitant]
     Indication: Hypertension
     Route: 048
     Dates: start: 20200610

REACTIONS (1)
  - Vitritis [Recovered/Resolved]

NARRATIVE: CASE EVENT DATE: 20200728
